FAERS Safety Report 23362983 (Version 2)
Quarter: 2024Q1

REPORT INFORMATION
  Report Type: Spontaneous
  Country: DE (occurrence: DE)
  Receive Date: 20240103
  Receipt Date: 20240125
  Transmission Date: 20240410
  Serious: Yes (Hospitalization, Other)
  Sender: FDA-Public Use
  Company Number: DE-MEDAC-2023001861

PATIENT
  Age: 60 Year
  Sex: Female
  Weight: 79 kg

DRUGS (2)
  1. METHOTREXATE SODIUM [Suspect]
     Active Substance: METHOTREXATE SODIUM
     Indication: Seronegative arthritis
     Dosage: 12.5 MG, WEEKLY (10 MG+2.5 MG)
     Dates: start: 20171114, end: 20231001
  2. LEFLUNOMIDE [Suspect]
     Active Substance: LEFLUNOMIDE
     Indication: Seronegative arthritis
     Dosage: 20 MG, 1X/DAY, LONGSTANDING THERAPY (1-0-0)
     Dates: start: 20230711, end: 20231001

REACTIONS (4)
  - Liver disorder [Recovered/Resolved]
  - Primary biliary cholangitis [Unknown]
  - Cholestasis [Not Recovered/Not Resolved]
  - Off label use [Unknown]

NARRATIVE: CASE EVENT DATE: 20171114
